FAERS Safety Report 4889349-6 (Version None)
Quarter: 2006Q1

REPORT INFORMATION
  Report Type: 
  Country: None (occurrence: None)
  Receive Date: 20060124
  Receipt Date: 20060112
  Transmission Date: 20060701
  Serious: Yes (Hospitalization)
  Sender: FDA-Public Use
  Company Number: NO-BRISTOL-MYERS SQUIBB COMPANY-13251707

PATIENT
  Age: 93 Year
  Sex: Female

DRUGS (5)
  1. GLUCOPHAGE [Suspect]
     Indication: DIABETES MELLITUS
     Route: 048
     Dates: end: 20051115
  2. ZESTORETIC [Suspect]
     Route: 048
     Dates: end: 20051215
  3. AMARYL [Concomitant]
     Indication: DIABETES MELLITUS
     Route: 048
  4. LEVAXIN [Concomitant]
     Indication: HYPOTHYROIDISM
     Route: 048
  5. SELO-ZOK [Concomitant]
     Route: 048

REACTIONS (2)
  - METABOLIC ACIDOSIS [None]
  - RENAL FAILURE ACUTE [None]
